FAERS Safety Report 5773832-5 (Version None)
Quarter: 2008Q2

REPORT INFORMATION
  Report Type: 
  Country: None (occurrence: None)
  Receive Date: 20080601
  Receipt Date: 20080328
  Transmission Date: 20081010
  Serious: No
  Sender: FDA-Public Use
  Company Number: US200803006895

PATIENT
  Age: 61 Year
  Sex: Male
  Weight: 98.9 kg

DRUGS (5)
  1. BYETTA [Suspect]
     Indication: TYPE 2 DIABETES MELLITUS
     Dosage: 5 UG, 2/D, SUBCUTANEOUS
     Route: 058
     Dates: start: 20071201, end: 20080201
  2. EXENATIDE 5MCG PEN, DISPOSABLE DEVICE (EXENATIDE PRN (5MCG)) PEN,DISPO [Concomitant]
  3. GLIPIZIDE [Concomitant]
  4. GLUCOPHAGE /USA/ (METFORMIN HYDROCHLORIDE) [Concomitant]
  5. DRUG USED IN DIABETES [Concomitant]

REACTIONS (6)
  - FEELING JITTERY [None]
  - INSOMNIA [None]
  - NAUSEA [None]
  - PARAESTHESIA [None]
  - SOMNOLENCE [None]
  - WEIGHT DECREASED [None]
